FAERS Safety Report 17931454 (Version 2)
Quarter: 2020Q2

REPORT INFORMATION
  Report Type: Report from Study
  Country: PK (occurrence: PK)
  Receive Date: 20200623
  Receipt Date: 20200628
  Transmission Date: 20200714
  Serious: Yes (Life-Threatening)
  Sender: FDA-Public Use
  Company Number: NVSC2020PK174722

PATIENT
  Age: 34 Year
  Sex: Female

DRUGS (3)
  1. CERTICAN [Suspect]
     Active Substance: EVEROLIMUS
     Dosage: 1 DF, BID
     Route: 048
     Dates: start: 20191001
  2. CERTICAN [Suspect]
     Active Substance: EVEROLIMUS
     Indication: RENAL CANCER
     Dosage: 2 DF, BID
     Route: 048
     Dates: start: 20180928
  3. CERTICAN [Suspect]
     Active Substance: EVEROLIMUS
     Dosage: 2 DF, BID
     Route: 048
     Dates: start: 20200612

REACTIONS (5)
  - Weight increased [Not Recovered/Not Resolved]
  - Menstruation irregular [Not Recovered/Not Resolved]
  - Product use in unapproved indication [Unknown]
  - Abdominal discomfort [Not Recovered/Not Resolved]
  - Renal cyst [Unknown]

NARRATIVE: CASE EVENT DATE: 2018
